FAERS Safety Report 11870994 (Version 2)
Quarter: 2016Q1

REPORT INFORMATION
  Report Type: Spontaneous
  Country: US (occurrence: US)
  Receive Date: 20151228
  Receipt Date: 20160113
  Transmission Date: 20160526
  Serious: Yes (Hospitalization, Other)
  Sender: FDA-Public Use
  Company Number: US-BAYER-2015-475442

PATIENT
  Age: 41 Year
  Sex: Female
  Weight: 69 kg

DRUGS (1)
  1. MIRENA [Suspect]
     Active Substance: LEVONORGESTREL
     Dosage: UNK
     Route: 015
     Dates: end: 20150602

REACTIONS (5)
  - Device ineffective [Unknown]
  - Endometrial disorder [Unknown]
  - Uterine haemorrhage [Unknown]
  - Pelvic pain [Unknown]
  - Device dislocation [Unknown]

NARRATIVE: CASE EVENT DATE: 2015
